FAERS Safety Report 6584234-6 (Version None)
Quarter: 2010Q1

REPORT INFORMATION
  Report Type: 
  Country: None (occurrence: None)
  Receive Date: 20100216
  Receipt Date: 20100113
  Transmission Date: 20100710
  Serious: No
  Sender: FDA-Public Use
  Company Number: US-ABBOTT-10P-163-0619044-00

PATIENT
  Sex: Female

DRUGS (2)
  1. SIMCOR [Suspect]
     Indication: BLOOD CHOLESTEROL INCREASED
     Dosage: 1 - 750/20MG TAB DAILY
     Route: 048
     Dates: end: 20091214
  2. SIMCOR [Suspect]
     Dosage: 1 - 750/20MG TAB DAILY
     Route: 048
     Dates: start: 20100113

REACTIONS (1)
  - FEELING HOT [None]
